FAERS Safety Report 26143821 (Version 3)
Quarter: 2025Q4

REPORT INFORMATION
  Report Type: Spontaneous
  Country: JP (occurrence: JP)
  Receive Date: 20251211
  Receipt Date: 20251229
  Transmission Date: 20260117
  Serious: Yes (Death, Hospitalization)
  Sender: ALEXION PHARMACEUTICALS
  Company Number: JP-AstraZeneca-CH-01010114A

PATIENT
  Age: 10 Decade
  Sex: Female
  Weight: 53.6 kg

DRUGS (5)
  1. LOKELMA [Suspect]
     Active Substance: SODIUM ZIRCONIUM CYCLOSILICATE
     Indication: Hyperkalaemia
     Dosage: 10G 3 TIMES/DAY FOR 2 DAYS
     Route: 061
     Dates: start: 20251201, end: 20251202
  2. LOKELMA [Suspect]
     Active Substance: SODIUM ZIRCONIUM CYCLOSILICATE
     Dosage: 5G ONCE/DAY
     Route: 061
     Dates: start: 20251208, end: 20251222
  3. DOBUTAMINE [Concomitant]
     Active Substance: DOBUTAMINE HYDROCHLORIDE
     Route: 065
  4. BISOPROLOL [Concomitant]
     Active Substance: BISOPROLOL
     Route: 065
  5. FUROSEMIDE [Concomitant]
     Active Substance: FUROSEMIDE
     Dosage: 20 MG/MIN 1
     Route: 065

REACTIONS (1)
  - Blood potassium increased [Fatal]

NARRATIVE: CASE EVENT DATE: 20251205
